FAERS Safety Report 8785004 (Version 1)
Quarter: 2012Q4

REPORT INFORMATION
  Report Type: Spontaneous
  Country: US (occurrence: None)
  Receive Date: 20120907
  Receipt Date: 20120907
  Transmission Date: 20130627
  Serious: Yes (Hospitalization, Other)
  Sender: FDA-Public Use
  Company Number: None

PATIENT
  Age: 41 Year
  Sex: Female

DRUGS (1)
  1. ORENCIA [Suspect]
     Indication: RA
     Route: 058
     Dates: start: 20120802, end: 20120905

REACTIONS (2)
  - Ocular hyperaemia [None]
  - Vascular rupture [None]
